FAERS Safety Report 6161037-8 (Version None)
Quarter: 2009Q2

REPORT INFORMATION
  Report Type: 
  Country: None (occurrence: None)
  Receive Date: 20090420
  Receipt Date: 20090406
  Transmission Date: 20091009
  Serious: Yes (Death, Hospitalization)
  Sender: FDA-Public Use
  Company Number: ZA-PFIZER INC-2009194509

PATIENT

DRUGS (6)
  1. BLINDED *DICLOFENAC [Suspect]
     Dosage: NO DOSE GIVEN
  2. BLINDED *DICLOFENAC SODIUM [Suspect]
     Dosage: NO DOSE GIVEN
  3. BLINDED *OMEPRAZOLE [Suspect]
     Dosage: NO DOSE GIVEN
  4. BLINDED *PLACEBO [Suspect]
     Dosage: NO DOSE GIVEN
  5. BLINDED CELECOXIB [Suspect]
     Dosage: NO DOSE GIVEN
  6. BLINDED DICLOFENAC SODIUM [Suspect]
     Dosage: NO DOSE GIVEN

REACTIONS (6)
  - ANXIETY [None]
  - CARDIOPULMONARY FAILURE [None]
  - DYSPNOEA [None]
  - GENERAL PHYSICAL HEALTH DETERIORATION [None]
  - INSOMNIA [None]
  - OEDEMA PERIPHERAL [None]
